FAERS Safety Report 15781866 (Version 13)
Quarter: 2021Q4

REPORT INFORMATION
  Report Type: Report from Study
  Country: CN (occurrence: None)
  Receive Date: 20190102
  Receipt Date: 20211102
  Transmission Date: 20220303
  Serious: Yes (Hospitalization)
  Sender: FDA-Public Use
  Company Number: CN-ROCHE-2238197

PATIENT
  Age: 46 Year
  Sex: Female
  Weight: 58 kg

DRUGS (40)
  1. ATEZOLIZUMAB [Suspect]
     Active Substance: ATEZOLIZUMAB
     Indication: Malignant peritoneal neoplasm
     Dosage: DATE OF MOST RECENT DOSE PRIOR TO EVENT: 06/DEC/2018?MOST RECENT DOSE ON 08/MAR/2019
     Route: 042
     Dates: start: 20181206
  2. PACLITAXEL [Suspect]
     Active Substance: PACLITAXEL
     Indication: Malignant peritoneal neoplasm
     Dosage: DATE OF MOST RECENT DOSE (255 MG) PRIOR TO EVENT: 06/DEC/2018?DATE OF MOST RECENT DOSE (270 MG) PRIO
     Route: 042
     Dates: start: 20181206
  3. CARBOPLATIN [Suspect]
     Active Substance: CARBOPLATIN
     Indication: Malignant peritoneal neoplasm
     Dosage: AT A DOSE TO ACHIEVE A TARGET AREA UNDER THE CURVE (AUC) OF 6 MILLIGRAMS PER MILLILITER*MINUTE (MG/M
     Route: 042
     Dates: start: 20181206
  4. BEVACIZUMAB [Suspect]
     Active Substance: BEVACIZUMAB
     Indication: Malignant peritoneal neoplasm
     Dosage: MOST RECENT DOSE (840 MG) ON 08/MAR/2019
     Route: 042
     Dates: start: 20181231
  5. LANSOPRAZOLE [Concomitant]
     Active Substance: LANSOPRAZOLE
     Dates: start: 20181206, end: 20181206
  6. LANSOPRAZOLE [Concomitant]
     Active Substance: LANSOPRAZOLE
     Dates: start: 20190215, end: 20190215
  7. LANSOPRAZOLE [Concomitant]
     Active Substance: LANSOPRAZOLE
     Dates: start: 20190308, end: 20190308
  8. AZASETRON HYDROCHLORIDE [Concomitant]
     Active Substance: AZASETRON HYDROCHLORIDE
     Dates: start: 20181206, end: 20181206
  9. AZASETRON HYDROCHLORIDE [Concomitant]
     Active Substance: AZASETRON HYDROCHLORIDE
     Dates: start: 20190215, end: 20190215
  10. AZASETRON HYDROCHLORIDE [Concomitant]
     Active Substance: AZASETRON HYDROCHLORIDE
     Dates: start: 20190308, end: 20190308
  11. SODIUM CHLORIDE [Concomitant]
     Active Substance: SODIUM CHLORIDE
     Dates: start: 20181206, end: 20181206
  12. SODIUM CHLORIDE [Concomitant]
     Active Substance: SODIUM CHLORIDE
     Dates: start: 20190215, end: 20190215
  13. SODIUM CHLORIDE [Concomitant]
     Active Substance: SODIUM CHLORIDE
     Dates: start: 20190308, end: 20190308
  14. AMIFOSTINE [Concomitant]
     Active Substance: AMIFOSTINE
     Dates: start: 20181206, end: 20181206
  15. AMIFOSTINE [Concomitant]
     Active Substance: AMIFOSTINE
     Dates: start: 20190215, end: 20190215
  16. AMIFOSTINE [Concomitant]
     Active Substance: AMIFOSTINE
     Dates: start: 20190308, end: 20190308
  17. INVERT SUGAR [Concomitant]
     Active Substance: INVERT SUGAR
     Dates: start: 20181206, end: 20181206
  18. GLUTATHIONE [Concomitant]
     Active Substance: GLUTATHIONE
     Dates: start: 20181206, end: 20181206
  19. GLUTATHIONE [Concomitant]
     Active Substance: GLUTATHIONE
     Dates: start: 20181207, end: 20181210
  20. GLUTATHIONE [Concomitant]
     Active Substance: GLUTATHIONE
     Dates: start: 20190215, end: 20190215
  21. GLUTATHIONE [Concomitant]
     Active Substance: GLUTATHIONE
     Dates: start: 20190308, end: 20190308
  22. LIDOCAINE HYDROCHLORIDE [Concomitant]
     Active Substance: LIDOCAINE HYDROCHLORIDE
     Dates: start: 20181206, end: 20181206
  23. MAGNESIUM SULFATE [Concomitant]
     Active Substance: MAGNESIUM SULFATE
     Indication: Oedema
     Dates: start: 20181205, end: 20181208
  24. GLYCOSAMINOGLYCANS [Concomitant]
     Active Substance: GLYCOSAMINOGLYCANS
     Indication: Oedema
     Dates: start: 20181206, end: 20181208
  25. FERROUS SUCCINATE [Concomitant]
     Active Substance: FERROUS SUCCINATE
     Indication: Anaemia
     Dates: start: 20181207, end: 20190123
  26. FERROUS SUCCINATE [Concomitant]
     Active Substance: FERROUS SUCCINATE
     Dates: start: 20190126, end: 20190214
  27. POTASSIUM CHLORIDE [Concomitant]
     Active Substance: POTASSIUM CHLORIDE
     Dates: start: 20181207, end: 20181210
  28. POTASSIUM CHLORIDE [Concomitant]
     Active Substance: POTASSIUM CHLORIDE
     Dates: start: 20190215, end: 20190215
  29. POTASSIUM CHLORIDE [Concomitant]
     Active Substance: POTASSIUM CHLORIDE
     Dates: start: 20190308, end: 20190308
  30. CALCIUM GLUCONATE [Concomitant]
     Active Substance: CALCIUM GLUCONATE
     Indication: Mineral supplementation
     Dates: start: 20181207, end: 20181207
  31. POVIDONE-IODINE [Concomitant]
     Active Substance: POVIDONE-IODINE
     Dates: start: 20181206, end: 20181206
  32. ZOLPIDEM [Concomitant]
     Active Substance: ZOLPIDEM TARTRATE
     Dates: start: 20181228, end: 20190102
  33. ESTAZOLAM [Concomitant]
     Active Substance: ESTAZOLAM
     Dates: start: 20190410, end: 20190411
  34. ESTAZOLAM [Concomitant]
     Active Substance: ESTAZOLAM
     Dates: start: 20190413, end: 20190413
  35. ESTAZOLAM [Concomitant]
     Active Substance: ESTAZOLAM
     Dates: start: 20190423, end: 20190423
  36. ESTAZOLAM [Concomitant]
     Active Substance: ESTAZOLAM
     Dates: start: 20190429, end: 20190429
  37. ESTAZOLAM [Concomitant]
     Active Substance: ESTAZOLAM
     Dates: start: 20190507, end: 20190507
  38. ESTAZOLAM [Concomitant]
     Active Substance: ESTAZOLAM
     Dates: start: 20190512, end: 20190512
  39. ESTAZOLAM [Concomitant]
     Active Substance: ESTAZOLAM
     Dates: start: 20190519, end: 20190519
  40. ESTAZOLAM [Concomitant]
     Active Substance: ESTAZOLAM
     Route: 042
     Dates: start: 20190522, end: 20190522

REACTIONS (2)
  - Thrombocytopenia [Recovered/Resolved]
  - Thrombocytopenia [Recovered/Resolved]

NARRATIVE: CASE EVENT DATE: 20181224
